FAERS Safety Report 4495247-2 (Version None)
Quarter: 2004Q4

REPORT INFORMATION
  Report Type: 
  Country: None (occurrence: None)
  Receive Date: 20041108
  Receipt Date: 20040728
  Transmission Date: 20050328
  Serious: No
  Sender: FDA-Public Use
  Company Number: US-GLAXOSMITHKLINE-A0520079A

PATIENT
  Sex: Male

DRUGS (6)
  1. AVANDAMET [Suspect]
     Dosage: 2MG TWICE PER DAY
     Route: 048
     Dates: start: 20030601
  2. TOPROL-XL [Concomitant]
  3. CLONIDINE HCL [Concomitant]
  4. VERAPAMIL [Concomitant]
  5. ZETIA [Concomitant]
  6. MULTI-VITAMIN [Concomitant]

REACTIONS (1)
  - BLOOD GLUCOSE INCREASED [None]
